FAERS Safety Report 4610718-3 (Version None)
Quarter: 2005Q2

REPORT INFORMATION
  Report Type: 
  Country: None (occurrence: None)
  Receive Date: 20050228
  Receipt Date: 20040630
  Transmission Date: 20051028
  Serious: Yes (Life-Threatening, Hospitalization)
  Sender: FDA-Public Use
  Company Number: 207526

PATIENT
  Age: 4 Year
  Sex: Female
  Weight: 26.4 kg

DRUGS (13)
  1. NUTROPIN AQ [Suspect]
     Dosage: 6/WEEK,
     Dates: start: 20031029, end: 20040122
  2. PROGRAF [Suspect]
     Dosage: 0.5 ML, BID,
  3. ENALAPRIL MALEATE [Suspect]
     Dosage: 0.7 ML, BID; ORAL
     Route: 048
  4. ZITHROMAX [Concomitant]
  5. PREDNISONE [Concomitant]
  6. DYNACIRC [Concomitant]
  7. PRILOSEC [Concomitant]
  8. ZYRTEC [Concomitant]
  9. PULMICORT [Concomitant]
  10. XOPENEX (VEVALBUTEROL HYDROCHLORIDE) [Concomitant]
  11. SOLU-MEDROL [Concomitant]
  12. NIFEDIPINE [Concomitant]
  13. ATENOLOL [Concomitant]

REACTIONS (1)
  - PANCREATITIS [None]
